FAERS Safety Report 9366353 (Version 1)
Quarter: 2013Q2

REPORT INFORMATION
  Report Type: Spontaneous
  Country: US (occurrence: US)
  Receive Date: 20130625
  Receipt Date: 20130625
  Transmission Date: 20140414
  Serious: Yes (Other)
  Sender: FDA-Public Use
  Company Number: US-JNJFOC-20130609809

PATIENT
  Sex: 0

DRUGS (4)
  1. DOXORUBICIN [Suspect]
     Indication: NEUROBLASTOMA
     Dosage: DAY 0 AND DAY 1, 2 CYCLES
     Route: 042
  2. CYCLOPHOSPHAMIDE [Suspect]
     Indication: NEUROBLASTOMA
     Dosage: 2G/M2/DAY, OVER 4 HOUR WITH MESNA ON DAYS 1 AND 2
     Route: 065
  3. VINCRISTINE [Suspect]
     Indication: NEUROBLASTOMA
     Dosage: DAY 0 AND DAY 1, 2 CYCLES
     Route: 065
  4. G-CSF [Suspect]
     Indication: NEUROBLASTOMA
     Dosage: 5 MCG/KG/DAY THRU NADIR, ESCALATE TO 10MCG/KG/DAY FOR PBSC COLLECTION
     Route: 065

REACTIONS (2)
  - Haematuria [Unknown]
  - Off label use [Unknown]
